FAERS Safety Report 20670017 (Version 1)
Quarter: 2022Q2

REPORT INFORMATION
  Report Type: Spontaneous
  Country: US (occurrence: US)
  Receive Date: 20220404
  Receipt Date: 20220404
  Transmission Date: 20220721
  Serious: No
  Sender: FDA-Public Use
  Company Number: US-PFIZER INC-202101099780

PATIENT
  Age: 65 Year
  Sex: Female
  Weight: 61.69 kg

DRUGS (1)
  1. ATORVASTATIN CALCIUM [Suspect]
     Active Substance: ATORVASTATIN CALCIUM
     Indication: Blood cholesterol increased
     Dosage: 10 MG, 1X/DAY:10 MG ONCE A DAY BY MOUTH
     Route: 048

REACTIONS (1)
  - Myalgia [Recovered/Resolved]
